FAERS Safety Report 19226701 (Version 6)
Quarter: 2021Q3

REPORT INFORMATION
  Report Type: Report from Study
  Country: None (occurrence: TR)
  Receive Date: 20210506
  Receipt Date: 20210810
  Transmission Date: 20211014
  Serious: Yes (Hospitalization)
  Sender: FDA-Public Use
  Company Number: TR-ABBVIE-21K-161-3892796-00

PATIENT
  Age: 61 Year
  Sex: Male
  Weight: 100 kg

DRUGS (5)
  1. DUODOPA [Suspect]
     Active Substance: CARBIDOPA\LEVODOPA
     Dosage: MORNING DOSE (ML): 9.00 CONTINIOUS DOSE (ML): 3.50 EXTRA DOSE (ML): 1.50
     Route: 050
     Dates: start: 20210508, end: 20210701
  2. DUODOPA [Suspect]
     Active Substance: CARBIDOPA\LEVODOPA
     Indication: PARKINSON^S DISEASE
     Dosage: MD (ML): 9.00 CD(ML): 3.50 ED (ML): 1.50
     Route: 050
     Dates: start: 20210422, end: 20210505
  3. EXELON [Concomitant]
     Active Substance: RIVASTIGMINE TARTRATE
     Indication: DEMENTIA
     Dosage: PATCH
     Route: 062
     Dates: start: 2021
  4. VAZKOR [Concomitant]
     Indication: HYPERTENSION
     Route: 048
     Dates: start: 2020
  5. JANUMET [Concomitant]
     Active Substance: METFORMIN HYDROCHLORIDE\SITAGLIPTIN PHOSPHATE
     Indication: DIABETES MELLITUS
     Route: 048
     Dates: start: 2020

REACTIONS (4)
  - Stoma site discharge [Recovered/Resolved]
  - Device dislocation [Recovered/Resolved]
  - Fungal infection [Recovered/Resolved]
  - Stoma site erythema [Recovered/Resolved]

NARRATIVE: CASE EVENT DATE: 20210430
